FAERS Safety Report 5755345-X (Version None)
Quarter: 2008Q2

REPORT INFORMATION
  Report Type: 
  Country: None (occurrence: None)
  Receive Date: 20080602
  Receipt Date: 20080502
  Transmission Date: 20081010
  Serious: No
  Sender: FDA-Public Use
  Company Number: US-BAYER-200710466BWH

PATIENT
  Age: 49 Year
  Sex: Female
  Weight: 57 kg

DRUGS (7)
  1. AVELOX [Suspect]
     Indication: SINUSITIS
     Dosage: TOTAL DAILY DOSE: 400 MG  UNIT DOSE: 400 MG
     Route: 048
     Dates: start: 20070203
  2. AVELOX [Suspect]
     Route: 048
     Dates: start: 20070205
  3. AVELOX [Suspect]
     Dosage: TOTAL DAILY DOSE: 200 MG  UNIT DOSE: 400 MG
     Route: 048
     Dates: start: 20070206
  4. NEXIUM [Concomitant]
  5. SINGULAIR [Concomitant]
  6. ZYRTEC [Concomitant]
  7. ZELNORM [Concomitant]

REACTIONS (4)
  - BLINDNESS [None]
  - HEADACHE [None]
  - MALAISE [None]
  - MIGRAINE WITH AURA [None]
